FAERS Safety Report 19761825 (Version 2)
Quarter: 2021Q3

REPORT INFORMATION
  Report Type: Spontaneous
  Country: US (occurrence: US)
  Receive Date: 20210830
  Receipt Date: 20210907
  Transmission Date: 20211014
  Serious: Yes (Hospitalization, Other)
  Sender: FDA-Public Use
  Company Number: US-MICRO LABS LIMITED-ML2021-02171

PATIENT
  Age: 54 Year
  Sex: Female

DRUGS (4)
  1. SULFAMETHOXAZOLE AND TRIMETHOPRIM [Concomitant]
     Active Substance: SULFAMETHOXAZOLE\TRIMETHOPRIM
     Route: 048
  2. DAPTOMYCIN. [Suspect]
     Active Substance: DAPTOMYCIN
  3. ATORVASTATIN CALCIUM TABLETS USP, 10 MG [Suspect]
     Active Substance: ATORVASTATIN CALCIUM
  4. LEFLUNOMIDE. [Suspect]
     Active Substance: LEFLUNOMIDE

REACTIONS (3)
  - Rhabdomyolysis [Recovering/Resolving]
  - Tachycardia [Unknown]
  - Drug interaction [Recovering/Resolving]
